FAERS Safety Report 18382783 (Version 1)
Quarter: 2020Q4

REPORT INFORMATION
  Report Type: Spontaneous
  Country: ES (occurrence: ES)
  Receive Date: 20201014
  Receipt Date: 20201014
  Transmission Date: 20210114
  Serious: Yes (Other)
  Sender: FDA-Public Use
  Company Number: NVSC2020ES269913

PATIENT
  Age: 72 Year
  Sex: Male
  Weight: 64 kg

DRUGS (5)
  1. TEGRETOL [Suspect]
     Active Substance: CARBAMAZEPINE
     Indication: EPILEPSY
     Dosage: 400 MG, Q8H (400 MG/8H)
     Route: 048
     Dates: start: 20040122
  2. ENALAPRIL [Concomitant]
     Active Substance: ENALAPRIL
     Indication: PRODUCT USED FOR UNKNOWN INDICATION
     Dosage: UNK ( 20 MG 28 COMPRIMIDOS)
     Route: 065
  3. NOIAFREN [Concomitant]
     Active Substance: CLOBAZAM
     Indication: PRODUCT USED FOR UNKNOWN INDICATION
     Dosage: UNK ( 20 MG COMPRIMIDOS)
     Route: 065
  4. BROMAZEPAM [Concomitant]
     Active Substance: BROMAZEPAM
     Indication: PRODUCT USED FOR UNKNOWN INDICATION
     Dosage: UNK (1.6 MG CAPSULAS)
     Route: 065
  5. SERC [Concomitant]
     Indication: PRODUCT USED FOR UNKNOWN INDICATION
     Dosage: UNK ( 16 MG COMPRIMIDOS)
     Route: 065

REACTIONS (4)
  - Dizziness [Recovering/Resolving]
  - Dyspepsia [Recovering/Resolving]
  - Hyponatraemia [Recovering/Resolving]
  - Paraesthesia [Recovering/Resolving]

NARRATIVE: CASE EVENT DATE: 20200911
